FAERS Safety Report 9040559 (Version 1)
Quarter: 2013Q1

REPORT INFORMATION
  Report Type: Spontaneous
  Country: CA (occurrence: CA)
  Receive Date: 20130129
  Receipt Date: 20130129
  Transmission Date: 20140127
  Serious: Yes (Other)
  Sender: FDA-Public Use
  Company Number: CHPA2013CA001515

PATIENT
  Age: 57 Year
  Sex: Male

DRUGS (1)
  1. BUCKLEY^S MIXTURE [Suspect]
     Indication: NASOPHARYNGITIS
     Dosage: MOUTHFUL, UNK
     Route: 048

REACTIONS (2)
  - Pneumonia [Recovered/Resolved]
  - Wrong technique in drug usage process [Unknown]
